FAERS Safety Report 15432558 (Version 2)
Quarter: 2024Q2

REPORT INFORMATION
  Report Type: Spontaneous
  Country: ES (occurrence: ES)
  Receive Date: 20180927
  Receipt Date: 20240405
  Transmission Date: 20240716
  Serious: Yes (Hospitalization, Other)
  Sender: FDA-Public Use
  Company Number: ES-AUROBINDO-AUR-APL-2018-047151

PATIENT
  Age: 39 Year
  Sex: Female

DRUGS (3)
  1. FENTANYL [Interacting]
     Active Substance: FENTANYL\FENTANYL CITRATE
     Indication: Spinal pain
     Dosage: 50 MICROGRAM, DAILY
     Route: 062
     Dates: start: 20160817, end: 20160818
  2. GABAPENTIN [Interacting]
     Active Substance: GABAPENTIN
     Indication: Spinal pain
     Dosage: 300 MILLIGRAM, TWO TIMES A DAY
     Route: 048
     Dates: start: 20160817, end: 20160818
  3. DIAZEPAM [Interacting]
     Active Substance: DIAZEPAM
     Indication: Spinal pain
     Dosage: 5 MILLIGRAM, DAILY
     Route: 048
     Dates: start: 2015

REACTIONS (1)
  - Encephalopathy [Recovered/Resolved]

NARRATIVE: CASE EVENT DATE: 20160818
